FAERS Safety Report 8798984 (Version 3)
Quarter: 2013Q4

REPORT INFORMATION
  Report Type: Spontaneous
  Country: US (occurrence: US)
  Receive Date: 20120920
  Receipt Date: 20131101
  Transmission Date: 20140711
  Serious: No
  Sender: FDA-Public Use
  Company Number: US-009507513-1207USA001726

PATIENT
  Age: 47 Year
  Sex: Female
  Weight: 58.96 kg

DRUGS (4)
  1. IMPLANON [Suspect]
     Indication: CONTRACEPTION
     Dosage: UNK
     Route: 058
     Dates: start: 20120511, end: 20120611
  2. CLARINEX (DESLORATADINE) [Concomitant]
     Dosage: 5 MG, QD
     Route: 048
  3. SINGULAIR [Concomitant]
  4. ALBUTEROL SULFATE [Concomitant]
     Dosage: 2 PUFFS Q4-6HOURS PRN
     Route: 055

REACTIONS (5)
  - Blister [Unknown]
  - Hot flush [Recovered/Resolved]
  - Sleep disorder [Recovered/Resolved]
  - Night sweats [Recovered/Resolved]
  - Chills [Recovered/Resolved]
